FAERS Safety Report 16045465 (Version 1)
Quarter: 2019Q1

REPORT INFORMATION
  Report Type: Spontaneous
  Country: FR (occurrence: FR)
  Receive Date: 20190307
  Receipt Date: 20190307
  Transmission Date: 20190418
  Serious: Yes (Congenital Anomaly, Other)
  Sender: FDA-Public Use
  Company Number: FR-CIPLA LTD.-2019FR01220

PATIENT

DRUGS (3)
  1. NEVIRAPINE. [Suspect]
     Active Substance: NEVIRAPINE
     Dosage: UNK, 1 COURSE
     Route: 064
  2. ABACAVIR. [Suspect]
     Active Substance: ABACAVIR
     Dosage: UNK, 1 COURSE
     Route: 064
  3. ZIDOVUDINE. [Suspect]
     Active Substance: ZIDOVUDINE
     Dosage: UNK, 1 COURSE
     Route: 064

REACTIONS (2)
  - Astrocytoma malignant [Unknown]
  - Foetal exposure during pregnancy [Unknown]
